FAERS Safety Report 9701030 (Version 1)
Quarter: 2013Q4

REPORT INFORMATION
  Report Type: Spontaneous
  Country: FR (occurrence: FR)
  Receive Date: 20131121
  Receipt Date: 20131121
  Transmission Date: 20140711
  Serious: Yes (Death, Life-Threatening, Hospitalization, Other)
  Sender: FDA-Public Use
  Company Number: FR-ASTRAZENECA-2013SE85096

PATIENT
  Age: 28470 Day
  Sex: Female

DRUGS (9)
  1. INEXIUM [Suspect]
     Route: 048
  2. KEPPRA [Suspect]
     Route: 048
  3. PAROXETINE [Suspect]
     Route: 048
  4. COUMADINE [Suspect]
     Dosage: 1.5 MG OR 2 MG EVERY OTHER DAY
     Route: 048
     Dates: end: 20130927
  5. DIGOXINE NATIVELLE [Suspect]
     Route: 048
     Dates: end: 20130926
  6. LASILIX FAIBLE [Suspect]
     Route: 065
  7. ALDACTONE [Suspect]
     Route: 048
  8. TARDYFERON [Suspect]
     Route: 048
     Dates: end: 20130927
  9. IMOVANE [Suspect]
     Route: 048
     Dates: end: 20130926

REACTIONS (7)
  - Haematoma [Fatal]
  - Melaena [Unknown]
  - Fall [Unknown]
  - Normochromic normocytic anaemia [Unknown]
  - Renal failure acute [Unknown]
  - Rhabdomyolysis [Unknown]
  - Dehydration [Unknown]
